FAERS Safety Report 23525785 (Version 2)
Quarter: 2024Q1

REPORT INFORMATION
  Report Type: Spontaneous
  Country: HU (occurrence: HU)
  Receive Date: 20240215
  Receipt Date: 20240220
  Transmission Date: 20240410
  Serious: Yes (Death, Other)
  Sender: FDA-Public Use
  Company Number: HU-ASTELLAS-2024US004419

PATIENT
  Age: 60 Year
  Sex: Male

DRUGS (3)
  1. GILTERITINIB [Suspect]
     Active Substance: GILTERITINIB
     Indication: Acute myeloid leukaemia recurrent
     Dosage: UNK UNK, UNKNOWN FREQ.
     Route: 065
     Dates: start: 202206
  2. GILTERITINIB [Suspect]
     Active Substance: GILTERITINIB
     Indication: FLT3 gene mutation
     Dosage: UNK UNK, UNKNOWN FREQ. (THERAPY RESTARTED)
     Route: 065
  3. ENTECAVIR [Concomitant]
     Active Substance: ENTECAVIR
     Indication: Product used for unknown indication
     Dosage: UNK UNK, UNKNOWN FREQ.
     Route: 065

REACTIONS (6)
  - Clostridial sepsis [Fatal]
  - Sepsis [Unknown]
  - Myelosuppression [Unknown]
  - Haemoglobin increased [Recovered/Resolved]
  - Platelet count increased [Recovered/Resolved]
  - Asthenia [Unknown]

NARRATIVE: CASE EVENT DATE: 20220601
